FAERS Safety Report 9347854 (Version 4)
Quarter: 2013Q3

REPORT INFORMATION
  Report Type: Spontaneous
  Country: US (occurrence: US)
  Receive Date: 20130614
  Receipt Date: 20130816
  Transmission Date: 20140515
  Serious: No
  Sender: FDA-Public Use
  Company Number: US-PFIZER INC-2013175903

PATIENT
  Age: 68 Year
  Sex: Male
  Weight: 74.83 kg

DRUGS (3)
  1. VIAGRA [Suspect]
     Indication: LIBIDO DECREASED
     Dosage: 100 MG, UNK
     Route: 048
     Dates: start: 20130608
  2. VIAGRA [Suspect]
     Dosage: 100 MG, UNK
     Route: 048
  3. METFORMIN [Concomitant]
     Indication: DIABETES MELLITUS
     Dosage: 1000 MG, 2X/DAY

REACTIONS (2)
  - Product quality issue [Unknown]
  - Drug ineffective [Unknown]
